FAERS Safety Report 5759262-0 (Version None)
Quarter: 2008Q2

REPORT INFORMATION
  Report Type: 
  Country: None (occurrence: None)
  Receive Date: 20080604
  Receipt Date: 20080530
  Transmission Date: 20081010
  Serious: Yes (Hospitalization)
  Sender: FDA-Public Use
  Company Number: CA-MERCK-0806CAN00004

PATIENT
  Age: 50 Year
  Sex: Female

DRUGS (2)
  1. FOSAMAX [Suspect]
     Route: 048
     Dates: start: 20030101, end: 20030601
  2. FOSAMAX [Suspect]
     Route: 048

REACTIONS (1)
  - GALLBLADDER DISORDER [None]
